FAERS Safety Report 17551334 (Version 1)
Quarter: 2020Q1

REPORT INFORMATION
  Report Type: Spontaneous
  Country: DE (occurrence: DE)
  Receive Date: 20200317
  Receipt Date: 20200317
  Transmission Date: 20200409
  Serious: Yes (Hospitalization, Other)
  Sender: FDA-Public Use
  Company Number: DE-ACCORD-175244

PATIENT
  Age: 55 Year
  Sex: Male
  Weight: 112 kg

DRUGS (30)
  1. PANTOZOL [Concomitant]
     Active Substance: PANTOPRAZOLE SODIUM
     Dosage: 40 MG, 1X/DAY
     Route: 048
  2. MADOPAR [Concomitant]
     Active Substance: BENSERAZIDE HYDROCHLORIDE\LEVODOPA
     Indication: RESTLESS LEGS SYNDROME
     Dosage: 50 MG, 3X/DAY
     Route: 048
     Dates: start: 20030731, end: 20030822
  3. DELIX PLUS [Concomitant]
     Active Substance: HYDROCHLOROTHIAZIDE\RAMIPRIL
     Dosage: 1 DF, 1X/DAY
     Route: 048
  4. SIMVASTATIN. [Suspect]
     Active Substance: SIMVASTATIN
     Indication: HYPERLIPIDAEMIA
     Dosage: 20 MG, 2X/DAY
     Route: 048
  5. OXYGESIC [Concomitant]
     Active Substance: OXYCODONE
     Indication: PAIN
     Dosage: UNK
     Route: 048
     Dates: start: 200904, end: 200905
  6. MAGNESIUM VERLA DRAGEES [Concomitant]
  7. FERRO SANOL [Concomitant]
     Active Substance: FERROUS GLYCINE SULFATE
     Dosage: 20 GTT, 1X/DAY
     Route: 048
  8. IBUPROFEN. [Concomitant]
     Active Substance: IBUPROFEN
     Indication: PAIN
     Dosage: UNK
     Route: 048
  9. ALLOPURINOL. [Concomitant]
     Active Substance: ALLOPURINOL
     Indication: HYPERURICAEMIA
     Dosage: 100 MG, 1X/DAY
     Route: 048
     Dates: start: 200906
  10. LYRICA [Concomitant]
     Active Substance: PREGABALIN
     Dosage: 150 MG, 2X/DAY
     Route: 048
  11. CABASERIL [Suspect]
     Active Substance: CABERGOLINE
     Indication: RESTLESS LEGS SYNDROME
     Dosage: 2 MG, 1X/DAY
     Route: 048
     Dates: start: 2003, end: 200906
  12. TRAMAL [Concomitant]
     Active Substance: TRAMADOL
     Indication: PAIN
     Dosage: UNK
     Route: 048
     Dates: start: 200904, end: 200905
  13. PRAVASIN [Concomitant]
     Active Substance: PRAVASTATIN SODIUM
  14. TOREM [Concomitant]
     Active Substance: TORSEMIDE
     Dosage: 10 MG, 2X/DAY
     Route: 048
  15. TREVILOR RETARD [Concomitant]
     Active Substance: VENLAFAXINE HYDROCHLORIDE
     Dosage: 75 MG, 2X/DAY
     Route: 048
  16. SIMVASTATIN. [Suspect]
     Active Substance: SIMVASTATIN
     Indication: PRODUCT USED FOR UNKNOWN INDICATION
     Dosage: 20 MG, 1X/DAY
     Route: 048
  17. CABASERIL [Suspect]
     Active Substance: CABERGOLINE
     Indication: PRODUCT USED FOR UNKNOWN INDICATION
     Dosage: 3 MG, 1X/DAY
     Route: 048
     Dates: start: 200606
  18. CABASERIL [Suspect]
     Active Substance: CABERGOLINE
     Indication: RESTLESS LEGS SYNDROME
     Dosage: 4 MG, 1X/DAY
     Route: 048
     Dates: start: 2003, end: 200606
  19. CAPTOPRIL. [Concomitant]
     Active Substance: CAPTOPRIL
     Dosage: 12.5 MG, 1X/DAY
     Route: 048
  20. LORMETAZEPAM [Concomitant]
     Active Substance: LORMETAZEPAM
     Route: 048
  21. MORPHINE [Concomitant]
     Active Substance: MORPHINE
     Indication: PAIN
     Dosage: UNK
     Route: 048
     Dates: start: 2007, end: 2008
  22. PRAMIPEXOLE/PRAMIPEXOLE DIHYDROCHLORIDE [Concomitant]
     Active Substance: PRAMIPEXOLE DIHYDROCHLORIDE
     Dosage: UNK
     Route: 048
     Dates: end: 2003
  23. NOCTAMID [Concomitant]
     Active Substance: LORMETAZEPAM
  24. CABASERIL [Suspect]
     Active Substance: CABERGOLINE
     Indication: PRODUCT USED FOR UNKNOWN INDICATION
     Dosage: 1 MG, 1X/DAY
     Route: 048
     Dates: start: 200906
  25. NACOM [Concomitant]
     Active Substance: CARBIDOPA\LEVODOPA
     Indication: RESTLESS LEGS SYNDROME
     Dosage: 200 MG, UNK
     Route: 048
     Dates: start: 20030731, end: 20030822
  26. ZOPICLONE [Concomitant]
     Active Substance: ZOPICLONE
     Dosage: 7.5 MG, 1X/DAY (NIGHT)
     Route: 048
  27. ACETYLSALICYLIC ACID [Concomitant]
     Active Substance: ASPIRIN
     Dosage: 100 MG, 1X/DAY
     Route: 048
  28. SIFROL [Suspect]
     Active Substance: PRAMIPEXOLE
     Indication: RESTLESS LEGS SYNDROME
     Route: 048
     Dates: start: 20030731, end: 2003
  29. SEROQUEL [Concomitant]
     Active Substance: QUETIAPINE FUMARATE
     Dosage: 200 MG, 1X/DAY
     Route: 048
  30. ACETYLSALICYLIC ACID [Concomitant]
     Active Substance: ASPIRIN

REACTIONS (33)
  - Intentional overdose [Unknown]
  - Myocarditis [Not Recovered/Not Resolved]
  - Dyspnoea [Recovered/Resolved]
  - Suicide attempt [Unknown]
  - Hepatic cirrhosis [Not Recovered/Not Resolved]
  - Back pain [Unknown]
  - Costochondritis [Unknown]
  - Sleep disorder [Unknown]
  - Hepatic steatosis [Not Recovered/Not Resolved]
  - Aortic valve incompetence [Not Recovered/Not Resolved]
  - Logorrhoea [Not Recovered/Not Resolved]
  - Myositis [Unknown]
  - Fluid retention [Recovered/Resolved]
  - Substance dependence [Unknown]
  - Gambling disorder [Not Recovered/Not Resolved]
  - Homicidal ideation [Unknown]
  - Left ventricular hypertrophy [Recovering/Resolving]
  - Sleep apnoea syndrome [Not Recovered/Not Resolved]
  - Hyperphagia [Not Recovered/Not Resolved]
  - Depression [Unknown]
  - Obesity [Not Recovered/Not Resolved]
  - Renal cyst [Not Recovered/Not Resolved]
  - Impulse-control disorder [Not Recovered/Not Resolved]
  - Aortic valve disease [Unknown]
  - Alcoholism [Recovered/Resolved with Sequelae]
  - Condition aggravated [Unknown]
  - Intentional self-injury [Unknown]
  - Somnolence [Unknown]
  - Depression suicidal [Not Recovered/Not Resolved]
  - Cerebrovascular accident [Recovered/Resolved with Sequelae]
  - Pulmonary hypertension [Not Recovered/Not Resolved]
  - Hepatosplenomegaly [Not Recovered/Not Resolved]
  - Chest pain [Unknown]

NARRATIVE: CASE EVENT DATE: 2003
